FAERS Safety Report 10925337 (Version 3)
Quarter: 2015Q2

REPORT INFORMATION
  Report Type: Spontaneous
  Country: US (occurrence: US)
  Receive Date: 20150318
  Receipt Date: 20150505
  Transmission Date: 20150821
  Serious: No
  Sender: FDA-Public Use
  Company Number: US-PFIZER INC-2015093762

PATIENT
  Age: 64 Year
  Sex: Female
  Weight: 54 kg

DRUGS (6)
  1. LYRICA [Suspect]
     Active Substance: PREGABALIN
     Indication: FIBROMYALGIA
     Dosage: 75 MG, 2X/DAY
     Route: 048
     Dates: start: 20150224, end: 20150325
  2. LYRICA [Interacting]
     Active Substance: PREGABALIN
     Dosage: 150 MG, 1X/DAY
  3. AMPICILLIN [Concomitant]
     Active Substance: AMPICILLIN
     Indication: ACNE
     Dosage: 500 MG, EVERY 3 DAYS
     Route: 048
  4. ZYRTEC D ALLERGY AND CONGESTION [Interacting]
     Active Substance: CETIRIZINE HYDROCHLORIDE\PSEUDOEPHEDRINE HYDROCHLORIDE
     Dosage: UNK, 1X/DAY IN THE MORNING
     Route: 048
  5. AMLODIPINE/BENAZEPRIL [Concomitant]
     Dosage: [AMLODIPINE 5 MG]/[BENAZEPRIL 10MG], 1X/DAY
     Route: 048
  6. AMBIEN [Concomitant]
     Active Substance: ZOLPIDEM TARTRATE
     Indication: SLEEP DISORDER
     Dosage: 5 MG, AS NEEDED
     Route: 048

REACTIONS (6)
  - Drug ineffective [Not Recovered/Not Resolved]
  - Feeling drunk [Unknown]
  - Dry mouth [Not Recovered/Not Resolved]
  - Drug interaction [Not Recovered/Not Resolved]
  - Impaired driving ability [Unknown]
  - Dizziness [Recovered/Resolved]

NARRATIVE: CASE EVENT DATE: 201502
